FAERS Safety Report 5330219-7 (Version None)
Quarter: 2007Q2

REPORT INFORMATION
  Report Type: 
  Country: None (occurrence: None)
  Receive Date: 20070515
  Receipt Date: 20070503
  Transmission Date: 20071010
  Serious: Yes (Hospitalization)
  Sender: FDA-Public Use
  Company Number: 231962K07USA

PATIENT
  Age: 44 Year
  Sex: Female
  Weight: 102.0593 kg

DRUGS (8)
  1. REBIF [Suspect]
     Indication: MULTIPLE SCLEROSIS
     Dosage: 44 MCG, 3 IN 1 WEEKS, SUBCUTANEOUS
     Route: 058
     Dates: start: 20060807, end: 20070411
  2. AMANTADINE HCL [Concomitant]
  3. ASPIRIN [Concomitant]
  4. DYAZIDE [Concomitant]
  5. NORVASC [Concomitant]
  6. NEXIUM [Concomitant]
  7. NITRO CREAM (GLYCERYL TRINITRATE) [Concomitant]
  8. POTASSIUM (POTASSIUM) [Concomitant]

REACTIONS (9)
  - BODY TEMPERATURE FLUCTUATION [None]
  - CONDITION AGGRAVATED [None]
  - EXTREMITY NECROSIS [None]
  - FINGER AMPUTATION [None]
  - HAEMORRHAGE [None]
  - RAYNAUD'S PHENOMENON [None]
  - SENSORY LOSS [None]
  - SKIN DISCOLOURATION [None]
  - ULCER [None]
